FAERS Safety Report 14985433 (Version 1)
Quarter: 2018Q2

REPORT INFORMATION
  Report Type: Spontaneous
  Country: GB (occurrence: GB)
  Receive Date: 20180607
  Receipt Date: 20180607
  Transmission Date: 20180711
  Serious: Yes (Hospitalization, Other)
  Sender: FDA-Public Use
  Company Number: GB-TEVA-2018-GB-903509

PATIENT
  Age: 67 Year
  Sex: Male
  Weight: 86.2 kg

DRUGS (6)
  1. ATORVASTATIN [Suspect]
     Active Substance: ATORVASTATIN
     Indication: CARDIOVASCULAR EVENT PROPHYLAXIS
     Dosage: 10 MILLIGRAM DAILY; NIGHT
     Route: 048
     Dates: start: 20171218, end: 20180326
  2. CLOPIDOGREL [Concomitant]
     Active Substance: CLOPIDOGREL BISULFATE
  3. METFORMIN HYDROCHLORIDE. [Concomitant]
     Active Substance: METFORMIN HYDROCHLORIDE
  4. FYBOGEL [Concomitant]
     Active Substance: PLANTAGO OVATA SEED
  5. COLECALCIFEROL [Concomitant]
     Active Substance: CHOLECALCIFEROL
  6. LOPERAMIDE [Concomitant]
     Active Substance: LOPERAMIDE

REACTIONS (5)
  - Rash [Not Recovered/Not Resolved]
  - Liver function test abnormal [Recovering/Resolving]
  - Muscle spasms [Recovering/Resolving]
  - Hyperglycaemia [Recovered/Resolved]
  - Muscular weakness [Not Recovered/Not Resolved]
